FAERS Safety Report 23504898 (Version 1)
Quarter: 2024Q1

REPORT INFORMATION
  Report Type: Spontaneous
  Country: GB (occurrence: GB)
  Receive Date: 20240209
  Receipt Date: 20240209
  Transmission Date: 20240410
  Serious: No
  Sender: FDA-Public Use
  Company Number: None

PATIENT
  Age: 83 Year
  Sex: Female
  Weight: 67 kg

DRUGS (8)
  1. GABAPENTIN [Suspect]
     Active Substance: GABAPENTIN
     Indication: Ill-defined disorder
     Dosage: UNK
     Route: 065
     Dates: start: 20230106
  2. Adcal [Concomitant]
     Indication: Ill-defined disorder
     Dosage: UNK, BID, TAKE ONE TWICE DAILY
     Route: 065
     Dates: start: 20211018
  3. AMITRIPTYLINE HYDROCHLORIDE [Concomitant]
     Active Substance: AMITRIPTYLINE HYDROCHLORIDE
     Indication: Ill-defined disorder
     Dosage: UNK, HS, TAKE ONE AT NIGHT, CAN INCREASE TO TWO AT NIGHT
     Route: 065
     Dates: start: 20230106
  4. FOLIC ACID [Concomitant]
     Active Substance: FOLIC ACID
     Indication: Ill-defined disorder
     Dosage: TAKE ONE DAILY,  QD
     Route: 065
     Dates: start: 20211018
  5. GABAPENTIN [Concomitant]
     Active Substance: GABAPENTIN
     Indication: Ill-defined disorder
     Dosage: TAKE ONE CAPSULE, 3 TIMES A DAY, TID
     Route: 065
     Dates: start: 20221230
  6. ISPAGHULA EXTRACT\PSYLLIUM [Concomitant]
     Active Substance: HERBALS\PLANTAGO OVATA SEED\PLANTAGO SEED
     Indication: Ill-defined disorder
     Dosage: UNK, OD
     Route: 065
     Dates: start: 20211018
  7. METHOTREXATE [Concomitant]
     Active Substance: METHOTREXATE
     Indication: Ill-defined disorder
     Dosage: 10 MILLIGRAM, (FOUR 2.5MG TABS) PER WEEK
     Route: 065
     Dates: start: 20211018
  8. RAMIPRIL [Concomitant]
     Active Substance: RAMIPRIL
     Indication: Ill-defined disorder
     Dosage: TAKE ONE DAILY, QD
     Route: 065
     Dates: start: 20211018

REACTIONS (1)
  - Dizziness [Recovered/Resolved]

NARRATIVE: CASE EVENT DATE: 20230106
